FAERS Safety Report 15002199 (Version 1)
Quarter: 2018Q2

REPORT INFORMATION
  Report Type: Spontaneous
  Country: US (occurrence: US)
  Receive Date: 20180612
  Receipt Date: 20180612
  Transmission Date: 20180711
  Serious: Yes (Other)
  Sender: FDA-Public Use
  Company Number: US-ELI_LILLY_AND_COMPANY-US201806000306

PATIENT
  Age: 65 Year
  Sex: Female

DRUGS (1)
  1. TRULICITY [Suspect]
     Active Substance: DULAGLUTIDE
     Indication: PRODUCT USED FOR UNKNOWN INDICATION
     Dosage: 0.75 MG, UNKNOWN
     Route: 065
     Dates: start: 20180524

REACTIONS (9)
  - Flatulence [Unknown]
  - Drug dose omission [Unknown]
  - Dizziness [Unknown]
  - Injection site haemorrhage [Unknown]
  - Cardiac flutter [Unknown]
  - Headache [Unknown]
  - Nausea [Unknown]
  - Hyperhidrosis [Unknown]
  - Abdominal pain upper [Unknown]

NARRATIVE: CASE EVENT DATE: 201805
